FAERS Safety Report 6591155-1 (Version None)
Quarter: 2010Q1

REPORT INFORMATION
  Report Type: 
  Country: None (occurrence: None)
  Receive Date: 20100219
  Receipt Date: 20091215
  Transmission Date: 20100710
  Serious: No
  Sender: FDA-Public Use
  Company Number: US-BRISTOL-MYERS SQUIBB COMPANY-14850523

PATIENT
  Age: 51 Year
  Sex: Male

DRUGS (6)
  1. KENALOG [Suspect]
     Indication: HYPERSENSITIVITY
     Route: 030
     Dates: start: 20060718
  2. PRAVACHOL [Concomitant]
  3. DILANTIN [Concomitant]
  4. CELEXA [Concomitant]
  5. ASTELIN [Concomitant]
  6. MUCINEX [Concomitant]

REACTIONS (1)
  - INJECTION SITE PAIN [None]
